FAERS Safety Report 18754401 (Version 2)
Quarter: 2021Q1

REPORT INFORMATION
  Report Type: Spontaneous
  Country: IT (occurrence: IT)
  Receive Date: 20210119
  Receipt Date: 20210218
  Transmission Date: 20210419
  Serious: Yes (Other)
  Sender: FDA-Public Use
  Company Number: IT-SUN PHARMACEUTICAL INDUSTRIES LTD-2020RR-274748

PATIENT
  Age: 41 Year
  Sex: Female

DRUGS (7)
  1. OXALIPLATIN. [Suspect]
     Active Substance: OXALIPLATIN
     Dosage: 85 MILLIGRAM/SQ. METER/D2, EVERY 2 WEEKS
     Route: 065
     Dates: start: 201906
  2. IRINOTECAN [Suspect]
     Active Substance: IRINOTECAN
     Indication: BREAST CANCER
     Dosage: 180 MILLIGRAM/SQ. METER
     Route: 065
     Dates: start: 201906, end: 202001
  3. GEMCITABINE. [Suspect]
     Active Substance: GEMCITABINE
     Indication: BREAST CANCER
     Dosage: 1000 MILLIGRAM/SQ. METER/D1, EVERY 2 WEEKS
     Route: 065
  4. FLUOROURACIL. [Suspect]
     Active Substance: FLUOROURACIL
     Indication: BREAST CANCER
     Dosage: 400 MILLIGRAM/SQ. METER
     Route: 040
     Dates: start: 201906, end: 202001
  5. OXALIPLATIN. [Suspect]
     Active Substance: OXALIPLATIN
     Indication: BREAST CANCER
     Dosage: 85 MILLIGRAM/SQ. METER, UNK
     Route: 065
     Dates: start: 201906, end: 202001
  6. LEUCOVORIN. [Suspect]
     Active Substance: LEUCOVORIN
     Indication: BREAST CANCER
     Dosage: 400 MILLIGRAM/SQ. METER
     Route: 065
     Dates: start: 201906, end: 202001
  7. FLUOROURACIL. [Suspect]
     Active Substance: FLUOROURACIL
     Dosage: 2400 MILLIGRAM/SQ. METER (46?HOUR CONTINUOUS)
     Route: 065

REACTIONS (3)
  - Febrile neutropenia [Unknown]
  - Therapy partial responder [Unknown]
  - Vomiting [Unknown]
